FAERS Safety Report 7425770-X (Version None)
Quarter: 2011Q2

REPORT INFORMATION
  Report Type: 
  Country: None (occurrence: None)
  Receive Date: 20110420
  Receipt Date: 20110411
  Transmission Date: 20111010
  Serious: Yes (Other)
  Sender: FDA-Public Use
  Company Number: GB-ASTRAZENECA-2011SE20682

PATIENT
  Age: 75 Year
  Sex: Male
  Weight: 73.2 kg

DRUGS (8)
  1. AMLODIPINE [Concomitant]
  2. ASPIRIN [Concomitant]
  3. FINASTERIDE [Concomitant]
  4. ROSUVASTATIN [Concomitant]
  5. OMEPRAZOLE [Concomitant]
  6. LISINOPRIL [Suspect]
     Indication: HYPERTENSION
     Route: 048
     Dates: start: 20070716, end: 20110106
  7. SOLIFENACIN [Concomitant]
  8. DIPYRIDAMOLE [Concomitant]

REACTIONS (5)
  - RASH [None]
  - GENITAL RASH [None]
  - RASH GENERALISED [None]
  - LIP SWELLING [None]
  - HYPERSENSITIVITY [None]
